FAERS Safety Report 13876381 (Version 1)
Quarter: 2017Q3

REPORT INFORMATION
  Report Type: Spontaneous
  Country: US (occurrence: US)
  Receive Date: 20170817
  Receipt Date: 20170817
  Transmission Date: 20171127
  Serious: No
  Sender: FDA-Public Use
  Company Number: US-VERTEX PHARMACEUTICALS-2017-004414

PATIENT
  Sex: Male
  Weight: 94 kg

DRUGS (13)
  1. ZINC. [Concomitant]
     Active Substance: ZINC
  2. BUSPIRONE [Concomitant]
     Active Substance: BUSPIRONE HYDROCHLORIDE
  3. ADVAIR HFA [Concomitant]
     Active Substance: FLUTICASONE PROPIONATE\SALMETEROL XINAFOATE
  4. VITAMIN B12 [Concomitant]
     Active Substance: CYANOCOBALAMIN
  5. PROAIR HFA [Concomitant]
     Active Substance: ALBUTEROL SULFATE
     Route: 055
  6. XANAX [Concomitant]
     Active Substance: ALPRAZOLAM
  7. NEURONTIN [Concomitant]
     Active Substance: GABAPENTIN
  8. HYPERSAL [Concomitant]
  9. CYMBALTA [Concomitant]
     Active Substance: DULOXETINE HYDROCHLORIDE
  10. CREON [Concomitant]
     Active Substance: PANCRELIPASE AMYLASE\PANCRELIPASE LIPASE\PANCRELIPASE PROTEASE
  11. SEROQUEL [Concomitant]
     Active Substance: QUETIAPINE FUMARATE
  12. VITAMIN D2 [Concomitant]
     Active Substance: ERGOCALCIFEROL
  13. KALYDECO [Suspect]
     Active Substance: IVACAFTOR
     Indication: CYSTIC FIBROSIS
     Dosage: BID
     Route: 048
     Dates: start: 2017

REACTIONS (1)
  - Abdominal discomfort [Recovered/Resolved]

NARRATIVE: CASE EVENT DATE: 2017
